FAERS Safety Report 24870436 (Version 1)
Quarter: 2025Q1

REPORT INFORMATION
  Report Type: Spontaneous
  Country: US (occurrence: None)
  Receive Date: 20250121
  Receipt Date: 20250121
  Transmission Date: 20250409
  Serious: No
  Sender: FDA-CTU
  Company Number: None

PATIENT
  Age: 54 Year
  Sex: Male
  Weight: 76.5 kg

DRUGS (6)
  1. LATUDA [Suspect]
     Active Substance: LURASIDONE HYDROCHLORIDE
     Indication: Bipolar disorder
     Dosage: OTHER QUANTITY : 1 TABLET(S);?FREQUENCY : DAILY;?
     Route: 048
     Dates: start: 20240101, end: 20250114
  2. LITHIUM [Concomitant]
     Active Substance: LITHIUM
  3. PROPRANOLOL [Concomitant]
     Active Substance: PROPRANOLOL HYDROCHLORIDE
  4. LORAZEPAM [Concomitant]
     Active Substance: LORAZEPAM
  5. ATORVASTATIN [Concomitant]
     Active Substance: ATORVASTATIN
  6. Multi vitamin D3+k2 [Concomitant]

REACTIONS (3)
  - Weight decreased [None]
  - Depression [None]
  - Dysphagia [None]

NARRATIVE: CASE EVENT DATE: 20240101
